FAERS Safety Report 19860096 (Version 1)
Quarter: 2021Q3

REPORT INFORMATION
  Report Type: Spontaneous
  Country: CO (occurrence: CO)
  Receive Date: 20210921
  Receipt Date: 20210921
  Transmission Date: 20211014
  Serious: Yes (Hospitalization, Other)
  Sender: FDA-Public Use
  Company Number: CO-LUPIN PHARMACEUTICALS INC.-2021-17749

PATIENT
  Age: 15 Day
  Sex: Female

DRUGS (5)
  1. AMPICILLIN [Suspect]
     Active Substance: AMPICILLIN
     Indication: SEPSIS NEONATAL
     Dosage: UNK
     Route: 065
     Dates: start: 201511
  2. MEROPENEM. [Suspect]
     Active Substance: MEROPENEM
     Indication: SEPSIS NEONATAL
     Dosage: UNK
     Route: 065
     Dates: start: 201511
  3. VANCOMYCIN [Suspect]
     Active Substance: VANCOMYCIN
     Indication: SEPSIS NEONATAL
     Dosage: UNK
     Route: 065
     Dates: start: 201511
  4. CEFEPIME [Suspect]
     Active Substance: CEFEPIME HYDROCHLORIDE
     Indication: SEPSIS NEONATAL
     Dosage: UNK
     Route: 065
     Dates: start: 201511
  5. AMIKACIN. [Suspect]
     Active Substance: AMIKACIN
     Indication: SEPSIS NEONATAL
     Dosage: UNK
     Route: 065
     Dates: start: 201511

REACTIONS (3)
  - Candida infection [Unknown]
  - Systemic candida [Unknown]
  - Neonatal candida infection [Unknown]

NARRATIVE: CASE EVENT DATE: 20151115
